FAERS Safety Report 17195858 (Version 1)
Quarter: 2019Q4

REPORT INFORMATION
  Report Type: Spontaneous
  Country: US (occurrence: US)
  Receive Date: 20191224
  Receipt Date: 20191224
  Transmission Date: 20200122
  Serious: No
  Sender: FDA-Public Use
  Company Number: US-GW PHARMA-201912USGW4729

PATIENT

DRUGS (1)
  1. EPIDIOLEX [Suspect]
     Active Substance: CANNABIDIOL
     Indication: TUBEROUS SCLEROSIS COMPLEX
     Dosage: 250 MILLIGRAM, BID
     Route: 048
     Dates: start: 201912

REACTIONS (5)
  - Seizure [Recovered/Resolved]
  - Product use in unapproved indication [Not Recovered/Not Resolved]
  - Seizure [Unknown]
  - Lethargy [Unknown]
  - Vomiting [Unknown]

NARRATIVE: CASE EVENT DATE: 201912
